FAERS Safety Report 5635513-8 (Version None)
Quarter: 2008Q1

REPORT INFORMATION
  Report Type: 
  Country: None (occurrence: None)
  Receive Date: 20080222
  Receipt Date: 20080212
  Transmission Date: 20080703
  Serious: Yes (Other)
  Sender: FDA-Public Use
  Company Number: ES-PFIZER INC-2008014674

PATIENT
  Sex: Female

DRUGS (5)
  1. LYRICA [Suspect]
     Indication: NEURALGIA
     Route: 048
  2. LYRICA [Suspect]
     Indication: ANXIETY
  3. EUTIROX [Concomitant]
     Indication: HYPOTHYROIDISM
     Route: 048
  4. OMEPRAZOLE [Concomitant]
     Indication: IRRITABLE BOWEL SYNDROME
     Route: 048
  5. SERTRALINE [Concomitant]
     Indication: DEPRESSION
     Route: 048

REACTIONS (5)
  - COORDINATION ABNORMAL [None]
  - DIZZINESS [None]
  - DYSARTHRIA [None]
  - EYE IRRITATION [None]
  - FALL [None]
